FAERS Safety Report 18622089 (Version 1)
Quarter: 2020Q4

REPORT INFORMATION
  Report Type: Spontaneous
  Country: JP (occurrence: JP)
  Receive Date: 20201216
  Receipt Date: 20201216
  Transmission Date: 20210114
  Serious: Yes (Other)
  Sender: FDA-Public Use
  Company Number: JP-JNJFOC-20180111007

PATIENT
  Sex: Male

DRUGS (2)
  1. RISPERDAL [Suspect]
     Active Substance: RISPERIDONE
     Indication: PRODUCT USED FOR UNKNOWN INDICATION
     Route: 048
  2. CONCERTA [Suspect]
     Active Substance: METHYLPHENIDATE HYDROCHLORIDE
     Indication: PRODUCT USED FOR UNKNOWN INDICATION
     Dosage: DOSE UNKNOWN
     Route: 048

REACTIONS (9)
  - Physical deconditioning [Unknown]
  - Euphoric mood [Unknown]
  - Head discomfort [Unknown]
  - Insomnia [Unknown]
  - Headache [Unknown]
  - Terminal insomnia [Unknown]
  - Feeling abnormal [Unknown]
  - Altered state of consciousness [Unknown]
  - Nausea [Unknown]
